FAERS Safety Report 16622627 (Version 1)
Quarter: 2019Q3

REPORT INFORMATION
  Report Type: Spontaneous
  Country: SA (occurrence: SA)
  Receive Date: 20190724
  Receipt Date: 20190724
  Transmission Date: 20191004
  Serious: Yes (Hospitalization)
  Sender: FDA-Public Use
  Company Number: PHHY2019SA165430

PATIENT
  Age: 75 Year
  Sex: Male

DRUGS (6)
  1. VALSARTAN HYDROCHLOROTHIAZIDE KRKA [Concomitant]
     Active Substance: HYDROCHLOROTHIAZIDE\VALSARTAN
     Indication: HYPERTENSION
     Dosage: 80/12.5 MG
     Route: 065
  2. ASPIRIN. [Concomitant]
     Active Substance: ASPIRIN
     Indication: PRODUCT USED FOR UNKNOWN INDICATION
     Dosage: 81 MG, UNK
     Route: 065
  3. PANTOPRAZOLE [Concomitant]
     Active Substance: PANTOPRAZOLE
     Indication: PRODUCT USED FOR UNKNOWN INDICATION
     Dosage: 40 MG, UNK
     Route: 065
  4. METFORMIN [Concomitant]
     Active Substance: METFORMIN HYDROCHLORIDE
     Indication: DIABETES MELLITUS
     Dosage: 1000 MG, UNK
     Route: 065
  5. CALCIUM CARBONATE. [Suspect]
     Active Substance: CALCIUM CARBONATE
     Indication: OSTEOPOROSIS
     Route: 065
  6. CALCITRIOL. [Suspect]
     Active Substance: CALCITRIOL
     Indication: OSTEOPOROSIS
     Dosage: 400 U, QD
     Route: 065

REACTIONS (7)
  - Dehydration [Recovering/Resolving]
  - Milk-alkali syndrome [Recovering/Resolving]
  - Mental status changes [Recovering/Resolving]
  - Asthenia [Recovering/Resolving]
  - Confusional state [Recovering/Resolving]
  - Lethargy [Recovering/Resolving]
  - Disorientation [Recovering/Resolving]
